FAERS Safety Report 18057634 (Version 4)
Quarter: 2020Q3

REPORT INFORMATION
  Report Type: Spontaneous
  Country: IN (occurrence: IN)
  Receive Date: 20200723
  Receipt Date: 20200729
  Transmission Date: 20201103
  Serious: Yes (Death)
  Sender: FDA-Public Use
  Company Number: IN-ABBVIE-20K-078-3491787-00

PATIENT
  Weight: 1.1 kg

DRUGS (1)
  1. SURVANTA [Suspect]
     Active Substance: BERACTANT
     Indication: PRODUCT USED FOR UNKNOWN INDICATION
     Route: 039

REACTIONS (2)
  - Death [Fatal]
  - Product colour issue [Unknown]
